FAERS Safety Report 4751053-2 (Version None)
Quarter: 2005Q3

REPORT INFORMATION
  Report Type: 
  Country: None (occurrence: None)
  Receive Date: 20050824
  Receipt Date: 20050728
  Transmission Date: 20060218
  Serious: Yes (Hospitalization)
  Sender: FDA-Public Use
  Company Number: US-GLAXOSMITHKLINE-A0568118A

PATIENT
  Sex: Female

DRUGS (2)
  1. EPZICOM [Suspect]
     Indication: HIV INFECTION
     Dosage: 1TAB PER DAY
     Route: 048
  2. SUSTIVA [Concomitant]
     Indication: HIV INFECTION

REACTIONS (3)
  - HYPERSENSITIVITY [None]
  - PYREXIA [None]
  - RASH [None]
